FAERS Safety Report 23453398 (Version 1)
Quarter: 2024Q1

REPORT INFORMATION
  Report Type: Report from Study
  Country: US (occurrence: US)
  Receive Date: 20240129
  Receipt Date: 20240129
  Transmission Date: 20240410
  Serious: Yes (Hospitalization)
  Sender: FDA-Public Use
  Company Number: US-002147023-NVSC2023US266525

PATIENT
  Sex: Female

DRUGS (1)
  1. KISQALI [Suspect]
     Active Substance: RIBOCICLIB
     Indication: Breast cancer
     Dosage: 600 MG,QD
     Route: 048
     Dates: start: 20231205

REACTIONS (6)
  - Illness [Unknown]
  - Feeling abnormal [Unknown]
  - Feeling cold [Unknown]
  - Dysphonia [Unknown]
  - Asthenia [Unknown]
  - Decreased appetite [Unknown]
